FAERS Safety Report 8564563-7 (Version None)
Quarter: 2012Q3

REPORT INFORMATION
  Report Type: 
  Country: None (occurrence: None)
  Receive Date: 20120803
  Receipt Date: 20120801
  Transmission Date: 20120928
  Serious: Yes (Other)
  Sender: FDA-Public Use
  Company Number: VE-PFIZER INC-2012186675

PATIENT
  Age: 44 Year
  Sex: Female

DRUGS (2)
  1. ZOLOFT [Suspect]
     Indication: DEPRESSION
     Dosage: 50 MG, 1X/DAY
     Route: 048
     Dates: end: 20110801
  2. ZOLOFT [Suspect]
     Indication: ANXIETY

REACTIONS (2)
  - RENAL NEOPLASM [None]
  - CAESAREAN SECTION [None]
